FAERS Safety Report 7669763-6 (Version None)
Quarter: 2011Q3

REPORT INFORMATION
  Report Type: 
  Country: None (occurrence: None)
  Receive Date: 20110808
  Receipt Date: 20110801
  Transmission Date: 20111222
  Serious: Yes (Other)
  Sender: FDA-Public Use
  Company Number: US-B.I. PHARMACEUTICALS,INC./RIDGEFIELD-2011-BP-18430PF

PATIENT
  Sex: Female

DRUGS (2)
  1. SPIRIVA [Suspect]
  2. ARTHROTEC [Suspect]

REACTIONS (4)
  - EMPHYSEMA [None]
  - LUNG NEOPLASM MALIGNANT [None]
  - RHEUMATOID ARTHRITIS [None]
  - PAIN [None]
